FAERS Safety Report 11511798 (Version 4)
Quarter: 2016Q3

REPORT INFORMATION
  Report Type: Spontaneous
  Country: GB (occurrence: GB)
  Receive Date: 20150915
  Receipt Date: 20160714
  Transmission Date: 20161109
  Serious: Yes (Hospitalization, Other)
  Sender: FDA-Public Use
  Company Number: GB-AMGEN-GBRSP2015094891

PATIENT
  Age: 47 Year
  Sex: Female

DRUGS (3)
  1. ENBREL [Suspect]
     Active Substance: ETANERCEPT
     Indication: PSORIATIC ARTHROPATHY
     Dosage: 50 MG, WEEKLY
     Route: 065
  2. METHOTREXATE. [Concomitant]
     Active Substance: METHOTREXATE
     Dosage: 20 MG, WEEKLY
  3. METHOTREXATE. [Concomitant]
     Active Substance: METHOTREXATE
     Dosage: 25 MG, WEEKLY

REACTIONS (17)
  - Swelling [Unknown]
  - Dysuria [Unknown]
  - Mobility decreased [Unknown]
  - Joint swelling [Unknown]
  - Injection site reaction [Unknown]
  - Injection site erythema [Unknown]
  - Migraine [Unknown]
  - Productive cough [Unknown]
  - Infection [Unknown]
  - Lower respiratory tract infection [Unknown]
  - Erythema [Unknown]
  - Rash [Unknown]
  - Nasopharyngitis [Unknown]
  - Drug ineffective [Unknown]
  - Arthralgia [Unknown]
  - Malaise [Unknown]
  - Injection site pruritus [Unknown]
